FAERS Safety Report 7011008-4 (Version None)
Quarter: 2010Q3

REPORT INFORMATION
  Report Type: 
  Country: None (occurrence: None)
  Receive Date: 20100923
  Receipt Date: 20081117
  Transmission Date: 20110219
  Serious: No
  Sender: FDA-Public Use
  Company Number: US-WYE-H06863608

PATIENT
  Sex: Female
  Weight: 46.76 kg

DRUGS (7)
  1. RAPAMUNE [Suspect]
     Indication: T-LYMPHOCYTE COUNT INCREASED
     Dosage: DOSE AND FREQUENCY NOT SPECIFIED
     Route: 050
  2. RAPAMUNE [Suspect]
     Dosage: DOSE AND FREQUENCY NOT SPECIFIED
     Route: 050
     Dates: start: 20081101, end: 20081101
  3. RAPAMUNE [Suspect]
     Dosage: INITIAL LOADING DOSE OF 6 MG
     Route: 050
     Dates: start: 20081101, end: 20081101
  4. RAPAMUNE [Suspect]
     Route: 050
     Dates: start: 20081101
  5. ACTIGALL [Concomitant]
     Dosage: DOSE AND FREQUENCY NOT SPECIFIED
     Route: 065
  6. AMIKACIN [Concomitant]
     Indication: INFECTION PROPHYLAXIS
     Dosage: DOSE AND FREQUENCY NOT SPECIFIED
     Route: 065
  7. SOLU-MEDROL [Concomitant]
     Dosage: DOSE NOT SPECIFIED, GIVEN DAILY
     Route: 042

REACTIONS (1)
  - IMMUNOSUPPRESSANT DRUG LEVEL DECREASED [None]
